FAERS Safety Report 12611685 (Version 1)
Quarter: 2016Q3

REPORT INFORMATION
  Report Type: Spontaneous
  Country: US (occurrence: US)
  Receive Date: 20160801
  Receipt Date: 20160801
  Transmission Date: 20161109
  Serious: No
  Sender: FDA-Public Use
  Company Number: US-TARO-2016TAR00385

PATIENT
  Sex: Female

DRUGS (1)
  1. FLUOCINONIDE CREAM USP 0.1% [Suspect]
     Active Substance: FLUOCINONIDE
     Indication: RASH
     Dosage: UNK
     Route: 065

REACTIONS (2)
  - Product quality issue [Not Recovered/Not Resolved]
  - Application site irritation [Unknown]
